FAERS Safety Report 6593739-3 (Version None)
Quarter: 2010Q1

REPORT INFORMATION
  Report Type: 
  Country: None (occurrence: None)
  Receive Date: 20100218
  Receipt Date: 20100218
  Transmission Date: 20100710
  Serious: No
  Sender: FDA-Public Use
  Company Number: None

PATIENT
  Sex: Female
  Weight: 47.6277 kg

DRUGS (1)
  1. METHYLBA SALICY/HYOS [Suspect]
     Dosage: 4 TIMES DAILY
     Dates: start: 20090101, end: 20100101

REACTIONS (3)
  - CYSTITIS INTERSTITIAL [None]
  - DRUG INEFFECTIVE [None]
  - PRODUCT SUBSTITUTION ISSUE [None]
